FAERS Safety Report 10264222 (Version 2)
Quarter: 2014Q3

REPORT INFORMATION
  Report Type: Spontaneous
  Country: DE (occurrence: DE)
  Receive Date: 20140627
  Receipt Date: 20140808
  Transmission Date: 20150326
  Serious: Yes (Life-Threatening, Other)
  Sender: FDA-Public Use
  Company Number: DE-RANBAXY-2014RR-82807

PATIENT
  Age: 40 Year
  Sex: Male
  Weight: 90 kg

DRUGS (2)
  1. SERTRALIN BASICS 50MG FILMTABLETTEN [Suspect]
     Active Substance: SERTRALINE HYDROCHLORIDE
     Indication: PRODUCT USED FOR UNKNOWN INDICATION
     Dosage: 30 TABLETS, TOTAL 1500 MG
     Route: 048
  2. SERTRALIN WINTHROP [Suspect]
     Active Substance: SERTRALINE HYDROCHLORIDE
     Indication: PRODUCT USED FOR UNKNOWN INDICATION
     Dosage: 10 TABLETS, TOTAL 500 MG
     Route: 048

REACTIONS (5)
  - Agitation [Unknown]
  - Ocular hyperaemia [Unknown]
  - Overdose [Unknown]
  - Hypertension [Unknown]
  - Suicide attempt [Unknown]
